FAERS Safety Report 6273642-9 (Version None)
Quarter: 2009Q3

REPORT INFORMATION
  Report Type: 
  Country: None (occurrence: None)
  Receive Date: 20090720
  Receipt Date: 20090617
  Transmission Date: 20100115
  Serious: No
  Sender: FDA-Public Use
  Company Number: US-BAYER-200924226NA

PATIENT
  Age: 24 Year
  Sex: Female
  Weight: 52 kg

DRUGS (3)
  1. MIRENA [Suspect]
     Indication: CONTRACEPTION
     Route: 015
     Dates: start: 20050505
  2. ANTIBIOTICS [Concomitant]
  3. VICODIN [Concomitant]

REACTIONS (6)
  - ABDOMINAL PAIN LOWER [None]
  - COITAL BLEEDING [None]
  - CRYING [None]
  - FEELING ABNORMAL [None]
  - MOOD SWINGS [None]
  - PYREXIA [None]
